FAERS Safety Report 5517863-9 (Version None)
Quarter: 2007Q4

REPORT INFORMATION
  Report Type: 
  Country: None (occurrence: None)
  Receive Date: 20071113
  Receipt Date: 20071101
  Transmission Date: 20080405
  Serious: Yes (Life-Threatening, Hospitalization, Disabling)
  Sender: FDA-Public Use
  Company Number: 163-21880-07101459

PATIENT
  Age: 70 Year
  Sex: Female

DRUGS (2)
  1. REVLIMID [Suspect]
     Indication: MYELODYSPLASTIC SYNDROME
     Dosage: 10 MG, 1 IN 1 D, ORAL; 10 MG, ORAL
     Route: 048
     Dates: start: 20070326, end: 20070403
  2. ERYTHROPOETIN(EPOETIN ALFA) [Concomitant]

REACTIONS (4)
  - APLASTIC ANAEMIA [None]
  - BONE MARROW FAILURE [None]
  - CONDITION AGGRAVATED [None]
  - THROMBOCYTOPENIA [None]
